FAERS Safety Report 5837201-1 (Version None)
Quarter: 2008Q3

REPORT INFORMATION
  Report Type: 
  Country: None (occurrence: None)
  Receive Date: 20080721
  Receipt Date: 20080609
  Transmission Date: 20090109
  Serious: No
  Sender: FDA-Public Use
  Company Number: US200806002201

PATIENT
  Age: 52 Year
  Sex: Female
  Weight: 59.9 kg

DRUGS (6)
  1. BYETTA [Suspect]
     Indication: TYPE 2 DIABETES MELLITUS
     Dosage: 5 UG, 2/D, SUBCUTANEOUS
     Route: 058
     Dates: start: 20080608
  2. EXENATIDE 5MCG PEN, DISPOSABLE DEVICE [Concomitant]
  3. DRUG USED IN DIABETES [Concomitant]
  4. GLIMEPIRIDE [Concomitant]
  5. LANTUS [Concomitant]
  6. ENALAPRIL MALEATE [Concomitant]

REACTIONS (2)
  - ACCIDENTAL NEEDLE STICK [None]
  - PUNCTURE SITE HAEMORRHAGE [None]
